FAERS Safety Report 4925165-4 (Version None)
Quarter: 2006Q1

REPORT INFORMATION
  Report Type: 
  Country: None (occurrence: None)
  Receive Date: 20060228
  Receipt Date: 20051220
  Transmission Date: 20060701
  Serious: No
  Sender: FDA-Public Use
  Company Number: US-GLAXOSMITHKLINE-A0586455A

PATIENT
  Sex: Female

DRUGS (2)
  1. AVODART [Suspect]
     Dates: start: 20051220, end: 20051220
  2. NO CONCURRENT MEDICATION [Concomitant]

REACTIONS (1)
  - DRUG EXPOSURE DURING PREGNANCY [None]
